FAERS Safety Report 10076876 (Version 2)
Quarter: 2014Q2

REPORT INFORMATION
  Report Type: Spontaneous
  Country: US (occurrence: US)
  Receive Date: 20140414
  Receipt Date: 20140414
  Transmission Date: 20141212
  Serious: Yes (Hospitalization, Other)
  Sender: FDA-Public Use
  Company Number: US-CELGENEUS-163-21880-13101464

PATIENT
  Age: 60 Year
  Sex: Female

DRUGS (2)
  1. REVLIMID [Suspect]
     Indication: PLASMA CELL MYELOMA
     Dosage: 10 MILLIGRAM
     Route: 048
     Dates: start: 20130924
  2. REVLIMID [Suspect]
     Dosage: 10 MILLIGRAM
     Route: 048
     Dates: start: 2014

REACTIONS (7)
  - Cardiac disorder [Recovered/Resolved]
  - Sepsis [Unknown]
  - Pneumonia [Unknown]
  - Cardiac failure congestive [Unknown]
  - Muscle spasms [Unknown]
  - Joint swelling [Unknown]
  - Arthralgia [Unknown]
